FAERS Safety Report 7906907-2 (Version None)
Quarter: 2011Q4

REPORT INFORMATION
  Report Type: 
  Country: None (occurrence: None)
  Receive Date: 20111110
  Receipt Date: 20111104
  Transmission Date: 20120403
  Serious: Yes (Other)
  Sender: FDA-Public Use
  Company Number: JP-BAYER-2011-108714

PATIENT
  Age: 48 Year
  Sex: Male

DRUGS (3)
  1. FEBUXOSTAT [Concomitant]
  2. NAPROXEN SODIUM [Suspect]
     Dosage: 100 MG, QD
     Route: 048
  3. NIZATIDINE [Concomitant]

REACTIONS (1)
  - GASTRIC ULCER [None]
